FAERS Safety Report 14238919 (Version 1)
Quarter: 2017Q4

REPORT INFORMATION
  Report Type: Spontaneous
  Country: US (occurrence: US)
  Receive Date: 20171130
  Receipt Date: 20171130
  Transmission Date: 20180321
  Serious: Yes (Hospitalization)
  Sender: FDA-Public Use
  Company Number: US-SA-2017SA164652

PATIENT

DRUGS (1)
  1. SOLIQUA 100/33 [Suspect]
     Active Substance: INSULIN GLARGINE\LIXISENATIDE
     Dosage: DOSE:30 UNIT(S)
     Route: 065
     Dates: start: 201705, end: 20170707

REACTIONS (3)
  - Pancreatitis [Unknown]
  - Amylase increased [Unknown]
  - Lipase increased [Unknown]
